FAERS Safety Report 5821377-6 (Version None)
Quarter: 2008Q3

REPORT INFORMATION
  Report Type: 
  Country: None (occurrence: None)
  Receive Date: 20080722
  Receipt Date: 20080722
  Transmission Date: 20090109
  Serious: No
  Sender: FDA-Public Use
  Company Number: None

PATIENT
  Sex: Female

DRUGS (1)
  1. CLOZAPINE [Suspect]
     Dosage: 125MG AM + HS PO
     Route: 048
     Dates: start: 20080514, end: 20080701

REACTIONS (1)
  - OEDEMA PERIPHERAL [None]
